FAERS Safety Report 8269880-6 (Version None)
Quarter: 2012Q2

REPORT INFORMATION
  Report Type: 
  Country: None (occurrence: None)
  Receive Date: 20120410
  Receipt Date: 20120403
  Transmission Date: 20120825
  Serious: No
  Sender: FDA-Public Use
  Company Number: US-PFIZER INC-2012049936

PATIENT
  Sex: Female

DRUGS (2)
  1. XALATAN [Suspect]
     Dosage: UNK
  2. LATANOPROST [Suspect]
     Dosage: 1 GTT, OU QHS
     Route: 047
     Dates: start: 20111010

REACTIONS (2)
  - EYE PAIN [None]
  - EYE IRRITATION [None]
